FAERS Safety Report 4761003-0 (Version None)
Quarter: 2005Q3

REPORT INFORMATION
  Report Type: 
  Country: None (occurrence: None)
  Receive Date: 20050901
  Receipt Date: 20050725
  Transmission Date: 20060218
  Serious: Yes (Hospitalization)
  Sender: FDA-Public Use
  Company Number: 2005BI014096

PATIENT
  Age: 27 Year
  Sex: Female

DRUGS (4)
  1. AVONEX [Suspect]
     Indication: MULTIPLE SCLEROSIS
     Dosage: IM
     Route: 030
     Dates: start: 20030102
  2. AVONEX [Suspect]
     Indication: MULTIPLE SCLEROSIS
     Dosage: IM
     Route: 030
     Dates: end: 20040101
  3. CYTOXAN [Concomitant]
  4. NOVANTRONE [Concomitant]

REACTIONS (2)
  - MULTIPLE SCLEROSIS [None]
  - WHITE BLOOD CELL COUNT DECREASED [None]
